FAERS Safety Report 11720561 (Version 1)
Quarter: 2015Q4

REPORT INFORMATION
  Report Type: Spontaneous
  Country: US (occurrence: US)
  Receive Date: 20151110
  Receipt Date: 20151110
  Transmission Date: 20160304
  Serious: No
  Sender: FDA-Public Use
  Company Number: US-APOPHARMA USA, INC.-2013AP007216

PATIENT
  Age: 21 Year
  Sex: Female
  Weight: 50.2 kg

DRUGS (5)
  1. TRI-SPRINTEC [Concomitant]
     Active Substance: ETHINYL ESTRADIOL\NORGESTIMATE
     Indication: CONTRACEPTION
     Route: 048
  2. VITAMIN D                          /00107901/ [Concomitant]
     Active Substance: ERGOCALCIFEROL
     Route: 048
  3. FERRIPROX [Suspect]
     Active Substance: DEFERIPRONE
     Indication: HAEMOCHROMATOSIS
  4. EXJADE [Concomitant]
     Active Substance: DEFERASIROX
  5. FERRIPROX [Suspect]
     Active Substance: DEFERIPRONE
     Indication: THALASSAEMIA
     Route: 048
     Dates: start: 20130713

REACTIONS (4)
  - Fatigue [Recovering/Resolving]
  - Chills [Recovered/Resolved]
  - Headache [Recovering/Resolving]
  - Urticaria [Recovering/Resolving]

NARRATIVE: CASE EVENT DATE: 20130730
